FAERS Safety Report 12382826 (Version 1)
Quarter: 2016Q2

REPORT INFORMATION
  Report Type: Other
  Country: TR (occurrence: TR)
  Receive Date: 20160518
  Receipt Date: 20160518
  Transmission Date: 20160815
  Serious: Yes (Hospitalization, Other)
  Sender: FDA-Public Use
  Company Number: TR-ENDO PHARMACEUTICALS INC-2016-003362

PATIENT
  Age: 33 Year
  Sex: Female

DRUGS (2)
  1. ORNIDAZOLE [Suspect]
     Active Substance: ORNIDAZOLE
     Indication: VAGINAL INFECTION
     Route: 065
  2. DOXYCYCLINE HYCLATE 100MG [Suspect]
     Active Substance: DOXYCYCLINE HYCLATE
     Indication: VAGINAL INFECTION
     Route: 065

REACTIONS (1)
  - Pancreatitis acute [Recovered/Resolved]
